FAERS Safety Report 23397317 (Version 1)
Quarter: 2024Q1

REPORT INFORMATION
  Report Type: Spontaneous
  Country: GB (occurrence: GB)
  Receive Date: 20240112
  Receipt Date: 20240112
  Transmission Date: 20240410
  Serious: Yes (Other)
  Sender: FDA-Public Use
  Company Number: None

PATIENT

DRUGS (1)
  1. OMEPRAZOLE [Suspect]
     Active Substance: OMEPRAZOLE
     Indication: Gastrooesophageal reflux disease
     Dates: start: 20231015

REACTIONS (4)
  - Oral candidiasis [Not Recovered/Not Resolved]
  - Swollen tongue [Unknown]
  - Glossodynia [Unknown]
  - Plicated tongue [Unknown]

NARRATIVE: CASE EVENT DATE: 20231218
